FAERS Safety Report 11801464 (Version 2)
Quarter: 2016Q3

REPORT INFORMATION
  Report Type: Spontaneous
  Country: US (occurrence: US)
  Receive Date: 20151204
  Receipt Date: 20160713
  Transmission Date: 20161109
  Serious: Yes (Other)
  Sender: FDA-Public Use
  Company Number: US-BAYER-2015-478520

PATIENT
  Age: 29 Year
  Sex: Female

DRUGS (13)
  1. PROTONIX [Concomitant]
     Active Substance: PANTOPRAZOLE SODIUM
  2. XYREM [Concomitant]
     Active Substance: SODIUM OXYBATE
  3. DILAUDID [Concomitant]
     Active Substance: HYDROMORPHONE HYDROCHLORIDE
  4. CARVEDILOL. [Concomitant]
     Active Substance: CARVEDILOL
  5. MONTELUKAST [Concomitant]
     Active Substance: MONTELUKAST SODIUM
  6. MECLIZINE [Suspect]
     Active Substance: MECLIZINE HYDROCHLORIDE
  7. MIRENA [Suspect]
     Active Substance: LEVONORGESTREL
     Dosage: 20 MCG/24HR, CONT
     Route: 015
     Dates: start: 20130523, end: 20131119
  8. GABAPENTIN. [Concomitant]
     Active Substance: GABAPENTIN
  9. NEURONTIN [Concomitant]
     Active Substance: GABAPENTIN
     Indication: PAIN
  10. EFFEXOR [Concomitant]
     Active Substance: VENLAFAXINE HYDROCHLORIDE
  11. COLACE [Concomitant]
     Active Substance: DOCUSATE SODIUM
  12. ZOFRAN [Concomitant]
     Active Substance: ONDANSETRON HYDROCHLORIDE
  13. IMITREX [Concomitant]
     Active Substance: SUMATRIPTAN SUCCINATE

REACTIONS (7)
  - Papilloedema [None]
  - Neck pain [None]
  - Benign intracranial hypertension [None]
  - Migraine [None]
  - Ear pain [None]
  - Visual impairment [None]
  - Dizziness [None]

NARRATIVE: CASE EVENT DATE: 201311
